FAERS Safety Report 6842254-8 (Version None)
Quarter: 2010Q3

REPORT INFORMATION
  Report Type: 
  Country: None (occurrence: None)
  Receive Date: 20100709
  Receipt Date: 20100628
  Transmission Date: 20110219
  Serious: Yes (Hospitalization)
  Sender: FDA-Public Use
  Company Number: 014433

PATIENT
  Sex: Male

DRUGS (7)
  1. CERTOLIZUMAB PEGOL (CERTOLIZUMAB PEGOL) [Suspect]
     Indication: RHEUMATOID ARTHRITIS
     Dosage: 400 MG 1X/MONTH SUBCUTANEOUS
     Route: 059
     Dates: start: 20100108, end: 20100528
  2. BUCILLAMINE [Concomitant]
  3. DICLOFENAC SODIUM [Concomitant]
  4. PREDNISOLONE [Concomitant]
  5. LANSOPRAZOLE [Concomitant]
  6. CEFCAPENE PIVOXIL HYDROCHLORIDE [Concomitant]
  7. CARBOCISTEINE [Concomitant]

REACTIONS (1)
  - GASTRIC CANCER [None]
